FAERS Safety Report 7077212-4 (Version None)
Quarter: 2010Q4

REPORT INFORMATION
  Report Type: 
  Country: None (occurrence: None)
  Receive Date: 20101101
  Receipt Date: 20101022
  Transmission Date: 20110411
  Serious: Yes (Other)
  Sender: FDA-Public Use
  Company Number: US-ROCHE-736668

PATIENT
  Sex: Female

DRUGS (13)
  1. HERCEPTIN [Suspect]
     Dosage: FREQ: WEEKLY
     Route: 065
     Dates: start: 20021017, end: 20030327
  2. HERCEPTIN [Suspect]
     Dosage: FREQ: EVERY OTHER WEEK
     Route: 065
     Dates: start: 20030403, end: 20040123
  3. HERCEPTIN [Suspect]
     Dosage: EVERY 3RD WEEK
     Route: 065
     Dates: start: 20040216, end: 20060216
  4. HERCEPTIN [Suspect]
     Dosage: FREQ: WEEKLY
     Route: 065
     Dates: start: 20060326, end: 20061128
  5. HERCEPTIN [Suspect]
     Dosage: FREQ: WEEKLY
     Route: 065
     Dates: start: 20061205, end: 20061227
  6. HERCEPTIN [Suspect]
     Dosage: FREQ: WEEKLY
     Route: 065
     Dates: start: 20070109, end: 20070130
  7. HERCEPTIN [Suspect]
     Dosage: FREQ: WEEKLY
     Route: 065
     Dates: start: 20070206, end: 20070821
  8. HERCEPTIN [Suspect]
     Dosage: FREQ: WEEKLY
     Route: 065
     Dates: start: 20080722, end: 20090316
  9. HERCEPTIN [Suspect]
     Dosage: FREQ: WEEKLY
     Route: 065
     Dates: start: 20090702, end: 20091117
  10. HERCEPTIN [Suspect]
     Dosage: FREQ: WEEKLY
     Route: 065
     Dates: start: 20091201
  11. XELODA [Suspect]
     Route: 065
     Dates: start: 20070911, end: 20080312
  12. AVASTIN [Suspect]
     Dosage: EVERY THRID WEEK
     Route: 065
     Dates: start: 20091215, end: 20100112
  13. ABRAXANE [Suspect]
     Dosage: FREQ: WEEKLY
     Route: 065
     Dates: start: 20080722, end: 20090316

REACTIONS (1)
  - DISEASE PROGRESSION [None]
